FAERS Safety Report 5899126-5 (Version None)
Quarter: 2008Q3

REPORT INFORMATION
  Report Type: 
  Country: None (occurrence: None)
  Receive Date: 20080925
  Receipt Date: 20080911
  Transmission Date: 20090109
  Serious: No
  Sender: FDA-Public Use
  Company Number: US-B.I. PHARMACEUTICALS,INC./RIDGEFIELD-2008-BP-14363BP

PATIENT
  Sex: Male

DRUGS (3)
  1. FLOMAX [Suspect]
     Indication: BENIGN PROSTATIC HYPERPLASIA
     Dosage: .4MG
     Route: 048
     Dates: start: 20080624
  2. PRILOSEC [Concomitant]
  3. CRESTOR [Concomitant]
     Dosage: 10MG

REACTIONS (4)
  - BURNING SENSATION [None]
  - EJACULATION FAILURE [None]
  - NOCTURIA [None]
  - URINARY RETENTION [None]
